FAERS Safety Report 16211813 (Version 1)
Quarter: 2019Q2

REPORT INFORMATION
  Report Type: Spontaneous
  Country: US (occurrence: US)
  Receive Date: 20190417
  Receipt Date: 20190417
  Transmission Date: 20190711
  Serious: Yes (Other)
  Sender: FDA-Public Use
  Company Number: None

PATIENT
  Age: 44 Year
  Sex: Female
  Weight: 83.7 kg

DRUGS (2)
  1. SECUKINUMAB. [Concomitant]
     Active Substance: SECUKINUMAB
     Dates: start: 20181018
  2. SECUKINUMAB. [Suspect]
     Active Substance: SECUKINUMAB
     Indication: ANKYLOSING SPONDYLITIS
     Dosage: ?          OTHER FREQUENCY:MONTHLY;?
     Route: 058

REACTIONS (1)
  - Intraocular pressure increased [None]
